FAERS Safety Report 5834057-8 (Version None)
Quarter: 2008Q3

REPORT INFORMATION
  Report Type: 
  Country: None (occurrence: None)
  Receive Date: 20080801
  Receipt Date: 20080801
  Transmission Date: 20090109
  Serious: Yes (Other)
  Sender: FDA-Public Use
  Company Number: None

PATIENT
  Sex: Female
  Weight: 73.4827 kg

DRUGS (1)
  1. DIOVAN [Suspect]
     Indication: HYPERTENSION
     Dosage: 160 MG  1/DAY PO
     Route: 048
     Dates: start: 20080716, end: 20080727

REACTIONS (2)
  - DRUG INEFFECTIVE [None]
  - HEADACHE [None]
